FAERS Safety Report 5316227-0 (Version None)
Quarter: 2007Q2

REPORT INFORMATION
  Report Type: 
  Country: None (occurrence: None)
  Receive Date: 20070503
  Receipt Date: 20070427
  Transmission Date: 20071010
  Serious: Yes (Other)
  Sender: FDA-Public Use
  Company Number: US-BOEHRINGER INGELHEIM PHARMACEUTICALS, INC.-2007-DE-02473GD

PATIENT

DRUGS (8)
  1. NEVIRAPINE [Suspect]
     Indication: PROPHYLAXIS
     Route: 015
  2. NEVIRAPINE [Suspect]
     Indication: HUMAN IMMUNODEFICIENCY VIRUS TRANSMISSION
  3. ZIDOVUDINE [Suspect]
     Indication: PROPHYLAXIS
  4. ZIDOVUDINE [Suspect]
     Indication: HUMAN IMMUNODEFICIENCY VIRUS TRANSMISSION
  5. STAVUDINE [Suspect]
     Indication: PROPHYLAXIS
     Route: 015
  6. STAVUDINE [Suspect]
     Indication: HUMAN IMMUNODEFICIENCY VIRUS TRANSMISSION
  7. TENOFOVIR [Suspect]
     Indication: PROPHYLAXIS
     Route: 015
  8. TENOFOVIR [Suspect]
     Indication: HUMAN IMMUNODEFICIENCY VIRUS TRANSMISSION

REACTIONS (6)
  - DRUG EXPOSURE DURING PREGNANCY [None]
  - DRUG RESISTANCE [None]
  - HIV INFECTION [None]
  - HUMAN IMMUNODEFICIENCY VIRUS TRANSMISSION [None]
  - MULTIPLE-DRUG RESISTANCE [None]
  - VERTICAL INFECTION TRANSMISSION [None]
